FAERS Safety Report 23340074 (Version 1)
Quarter: 2023Q4

REPORT INFORMATION
  Report Type: Spontaneous
  Country: FR (occurrence: None)
  Receive Date: 20231227
  Receipt Date: 20231227
  Transmission Date: 20240110
  Serious: Yes (Other)
  Sender: FDA-Public Use
  Company Number: None

PATIENT
  Age: 73 Year
  Sex: Male
  Weight: 88 kg

DRUGS (1)
  1. AVASTIN [Suspect]
     Active Substance: BEVACIZUMAB
     Indication: Gastrointestinal angiodysplasia
     Route: 065
     Dates: start: 202306

REACTIONS (1)
  - Adrenal insufficiency [Not Recovered/Not Resolved]

NARRATIVE: CASE EVENT DATE: 20230701
